FAERS Safety Report 9274722 (Version 1)
Quarter: 2013Q2

REPORT INFORMATION
  Report Type: Spontaneous
  Country: US (occurrence: None)
  Receive Date: 20130429
  Receipt Date: 20130429
  Transmission Date: 20140414
  Serious: Yes (Other)
  Sender: FDA-Public Use
  Company Number: AUR-APL-2013-03467

PATIENT
  Age: 39 Year
  Sex: Male

DRUGS (4)
  1. OLANZAPINE (OLANZAPINE) [Suspect]
     Indication: PRODUCT USED FOR UNKNOWN INDICATION
     Dosage: (2.5 MG,1 D)
  2. VARENICLINE TARTRATE [Suspect]
     Indication: SMOKING CESSATION THERAPY
     Route: 048
     Dates: start: 20121031
  3. VENLAFAXINE HYDROCHLORIDE [Suspect]
     Indication: PRODUCT USED FOR UNKNOWN INDICATION
  4. LITHICARB [Suspect]
     Indication: PRODUCT USED FOR UNKNOWN INDICATION
     Dosage: (1.3 GM,1 D),ORAL
     Route: 048

REACTIONS (4)
  - Nausea [None]
  - Abdominal pain upper [None]
  - Haematemesis [None]
  - Malaise [None]
